FAERS Safety Report 24270588 (Version 1)
Quarter: 2024Q3

REPORT INFORMATION
  Report Type: Spontaneous
  Country: US (occurrence: US)
  Receive Date: 20240831
  Receipt Date: 20240831
  Transmission Date: 20241016
  Serious: Yes (Hospitalization)
  Sender: CADILA
  Company Number: US-CPL-004549

PATIENT
  Sex: Male

DRUGS (5)
  1. OLANZAPINE [Suspect]
     Active Substance: OLANZAPINE
     Indication: Mental status changes
     Dosage: 5 MG IN THE MORNING AND 10 MG IN THE EVENING
  2. VALPROIC ACID [Suspect]
     Active Substance: VALPROIC ACID
     Indication: Mental status changes
     Dosage: 500 MG IN THE MORNING AND 700 MG IN?THE EVENING
  3. LORAZEPAM [Concomitant]
     Active Substance: LORAZEPAM
  4. HALOPERIDOL [Concomitant]
     Active Substance: HALOPERIDOL
  5. THIAMINE [Concomitant]
     Active Substance: THIAMINE
     Route: 042

REACTIONS (2)
  - Periorbital oedema [Recovered/Resolved]
  - Face oedema [Unknown]
